FAERS Safety Report 4897064-8 (Version None)
Quarter: 2006Q1

REPORT INFORMATION
  Report Type: 
  Country: None (occurrence: None)
  Receive Date: 20060127
  Receipt Date: 20060117
  Transmission Date: 20060701
  Serious: Yes (Hospitalization)
  Sender: FDA-Public Use
  Company Number: 2005-11-0260

PATIENT
  Age: 58 Year
  Sex: Female
  Weight: 63 kg

DRUGS (2)
  1. PEG-INTRON [Suspect]
     Indication: HEPATITIS C
     Dosage: 80 MCG QWK SUBCUTANEOUS
     Route: 058
     Dates: start: 20050113, end: 20051020
  2. RIBAVIRIN [Suspect]
     Indication: HEPATITIS C
     Dosage: 1000 MG QD ORAL
     Route: 048
     Dates: start: 20050101

REACTIONS (11)
  - ALOPECIA [None]
  - DIZZINESS [None]
  - ERYTHEMA [None]
  - HYPERTENSION [None]
  - HYPERTHYROIDISM [None]
  - HYPOACUSIS [None]
  - HYPOTHYROIDISM [None]
  - NASAL CONGESTION [None]
  - RASH [None]
  - TINNITUS [None]
  - WEIGHT DECREASED [None]
